FAERS Safety Report 5195003-6 (Version None)
Quarter: 2006Q4

REPORT INFORMATION
  Report Type: 
  Country: None (occurrence: None)
  Receive Date: 20061229
  Receipt Date: 20061220
  Transmission Date: 20070319
  Serious: Yes (Other)
  Sender: FDA-Public Use
  Company Number: JP-MERCK-0612USA03762

PATIENT
  Age: 68 Year
  Sex: Female

DRUGS (5)
  1. FOSAMAX [Suspect]
     Indication: SPINAL DISORDER
     Route: 048
  2. FOSAMAX [Suspect]
     Route: 048
  3. ELCITONIN [Concomitant]
     Route: 065
  4. NEUROTROPIN [Concomitant]
     Route: 065
  5. [THERAPY UNSPECIFIED] [Concomitant]
     Route: 061

REACTIONS (2)
  - COORDINATION ABNORMAL [None]
  - DIZZINESS [None]
